FAERS Safety Report 4293956-1 (Version None)
Quarter: 2004Q1

REPORT INFORMATION
  Report Type: 
  Country: None (occurrence: None)
  Receive Date: 20040210
  Receipt Date: 20040120
  Transmission Date: 20041129
  Serious: No
  Sender: FDA-Public Use
  Company Number: A04200400068

PATIENT
  Age: 83 Year
  Sex: Female

DRUGS (4)
  1. AMIODARONE HCL [Suspect]
     Indication: ATRIAL FIBRILLATION
     Dosage: 200 MG OD, ORAL
     Route: 048
     Dates: start: 19980901, end: 19990301
  2. AMIODARONE HCL [Suspect]
     Indication: TACHYARRHYTHMIA
     Dosage: 200 MG OD, ORAL
     Route: 048
     Dates: start: 19980901, end: 19990301
  3. MARCUMAR [Concomitant]
  4. ANTIHYPERTENSIVE DRUG [Concomitant]

REACTIONS (8)
  - ARTERIOSCLEROSIS [None]
  - CAROTID ARTERY DISEASE [None]
  - CORNEAL DEPOSITS [None]
  - OPTIC ATROPHY [None]
  - OPTIC NEUROPATHY [None]
  - PAPILLOEDEMA [None]
  - SCOTOMA [None]
  - VISUAL ACUITY REDUCED [None]
